FAERS Safety Report 15497806 (Version 1)
Quarter: 2018Q4

REPORT INFORMATION
  Report Type: Spontaneous
  Country: US (occurrence: US)
  Receive Date: 20181014
  Receipt Date: 20181014
  Transmission Date: 20190205
  Serious: Yes (Other)
  Sender: FDA-Public Use
  Company Number: None

PATIENT
  Age: 61 Year
  Sex: Female

DRUGS (1)
  1. IBUPROFEN. [Suspect]
     Active Substance: IBUPROFEN
     Route: 048
     Dates: start: 20181003, end: 20181014

REACTIONS (3)
  - Oral discomfort [None]
  - Lip blister [None]
  - Lip erythema [None]

NARRATIVE: CASE EVENT DATE: 20181011
